FAERS Safety Report 9311773 (Version 2)
Quarter: 2013Q3

REPORT INFORMATION
  Report Type: Report from Study
  Country: MX (occurrence: MX)
  Receive Date: 20130528
  Receipt Date: 20130708
  Transmission Date: 20140515
  Serious: Yes (Hospitalization, Other)
  Sender: FDA-Public Use
  Company Number: PHHY2011MX06180

PATIENT
  Age: 61 Year
  Sex: Female

DRUGS (4)
  1. ACLASTA [Suspect]
     Indication: OSTEOPOROSIS
     Dosage: 5 MG,YEARLY
     Route: 042
     Dates: start: 200901
  2. ACLASTA [Suspect]
     Dosage: 5 MG YEARLY
     Route: 042
     Dates: start: 201001
  3. ACLASTA [Suspect]
     Dosage: 5 MG YEARLY
     Route: 042
  4. ACLASTA [Suspect]
     Dosage: 5 MG YEARLY
     Route: 042
     Dates: start: 201212

REACTIONS (8)
  - Intervertebral disc protrusion [Recovered/Resolved]
  - Gastrooesophageal reflux disease [Unknown]
  - Osteopenia [Unknown]
  - Concomitant disease progression [Not Recovered/Not Resolved]
  - Bone disorder [Not Recovered/Not Resolved]
  - Spinal disorder [Not Recovered/Not Resolved]
  - Gastritis [Unknown]
  - Drug ineffective [Unknown]
